FAERS Safety Report 17623409 (Version 2)
Quarter: 2020Q2

REPORT INFORMATION
  Report Type: Spontaneous
  Country: US (occurrence: US)
  Receive Date: 20200403
  Receipt Date: 20200604
  Transmission Date: 20200713
  Serious: Yes (Other)
  Sender: FDA-Public Use
  Company Number: US-BAYER-2020-052464

PATIENT
  Age: 19 Year
  Sex: Male

DRUGS (1)
  1. KOGENATE FS [Suspect]
     Active Substance: ANTIHEMOPHILIC FACTOR, HUMAN RECOMBINANT
     Dosage: 3385 U, PRN
     Route: 042
     Dates: start: 20190918

REACTIONS (3)
  - Chest pain [None]
  - Haemarthrosis [None]
  - Haemorrhage [None]

NARRATIVE: CASE EVENT DATE: 20200324
